FAERS Safety Report 14057490 (Version 3)
Quarter: 2017Q4

REPORT INFORMATION
  Report Type: Spontaneous
  Country: JP (occurrence: JP)
  Receive Date: 20171006
  Receipt Date: 20171109
  Transmission Date: 20180321
  Serious: Yes (Hospitalization, Other)
  Sender: FDA-Public Use
  Company Number: JP-GILEAD-2017-0296446

PATIENT
  Age: 79 Year
  Sex: Male
  Weight: 74.4 kg

DRUGS (10)
  1. HANGESHASHINTO                     /08016601/ [Concomitant]
     Indication: DYSPEPSIA
     Dosage: 5 G, UNK
     Route: 048
     Dates: end: 20170915
  2. REBETOL [Concomitant]
     Active Substance: RIBAVIRIN
     Indication: CHRONIC HEPATITIS C
     Dosage: 200 MG, QOD ALTERNATE-DAY ADMINISTRATION (200 MG/DAY AND 400 MG/DAY)
     Route: 048
     Dates: start: 20170526, end: 20170816
  3. SOVALDI [Suspect]
     Active Substance: SOFOSBUVIR
     Indication: CHRONIC HEPATITIS C
     Dosage: 400 MG, UNK
     Route: 048
     Dates: start: 20170526, end: 20170816
  4. REBETOL [Concomitant]
     Active Substance: RIBAVIRIN
     Dosage: 400 MG, QOD
     Route: 048
     Dates: start: 20170526, end: 20170816
  5. PREDONINE [Concomitant]
     Active Substance: PREDNISOLONE
     Indication: PROSTATE CANCER
     Dosage: 10 MG, UNK
     Route: 048
     Dates: start: 20160303, end: 20170926
  6. ZYTIGA [Concomitant]
     Active Substance: ABIRATERONE ACETATE
     Indication: PROSTATE CANCER
     Dosage: 1 G, UNK
     Route: 048
     Dates: start: 20160303, end: 20170915
  7. REZALTAS [Concomitant]
     Active Substance: AZELNIDIPINE\OLMESARTAN MEDOXOMIL
     Indication: HYPERTENSION
     Dosage: 1 DF, UNK
     Route: 048
     Dates: end: 20170915
  8. ZYLORIC [Concomitant]
     Active Substance: ALLOPURINOL
     Indication: HYPERURICAEMIA
     Dosage: 200 MG, UNK
     Route: 048
     Dates: end: 20170915
  9. PLETAAL [Concomitant]
     Active Substance: CILOSTAZOL
     Indication: CAROTID ARTERY STENOSIS
     Dosage: 100 MG, UNK
     Route: 048
     Dates: end: 20170915
  10. DOXAZOSIN [Concomitant]
     Active Substance: DOXAZOSIN\DOXAZOSIN MESYLATE
     Indication: HYPERTENSION
     Dosage: 2 MG, UNK
     Route: 048
     Dates: end: 20170915

REACTIONS (5)
  - Neurodegenerative disorder [Recovered/Resolved]
  - Epilepsy [Recovered/Resolved]
  - Vasculitis [Recovered/Resolved]
  - Posterior reversible encephalopathy syndrome [Recovered/Resolved]
  - Infectious pleural effusion [Recovered/Resolved]

NARRATIVE: CASE EVENT DATE: 20170916
